FAERS Safety Report 8179336-7 (Version None)
Quarter: 2012Q1

REPORT INFORMATION
  Report Type: 
  Country: None (occurrence: None)
  Receive Date: 20120302
  Receipt Date: 20120223
  Transmission Date: 20120608
  Serious: Yes (Hospitalization, Other)
  Sender: FDA-Public Use
  Company Number: US-ABBOTT-12P-163-0908531-00

PATIENT
  Sex: Male
  Weight: 168.89 kg

DRUGS (10)
  1. NIASPAN [Suspect]
     Indication: HIGH DENSITY LIPOPROTEIN DECREASED
  2. UNKNOWN MEDICATION [Concomitant]
     Indication: BLOOD PRESSURE
  3. UNKNOWN MEDICATION [Concomitant]
     Indication: DIABETES MELLITUS
  4. VITAMIN K TAB [Suspect]
     Indication: INTERNATIONAL NORMALISED RATIO INCREASED
     Dates: start: 20111201, end: 20111201
  5. UNKNOWN PAIN MEDICATION [Concomitant]
     Indication: PAIN
  6. UNKNOWN VITAMINS [Concomitant]
     Indication: VITAMIN SUPPLEMENTATION
  7. TRICOR [Concomitant]
     Indication: BLOOD CHOLESTEROL ABNORMAL
  8. NIASPAN [Suspect]
     Indication: LOW DENSITY LIPOPROTEIN INCREASED
     Route: 048
     Dates: start: 20111101
  9. WARFARIN SODIUM [Suspect]
     Indication: THROMBOSIS PROPHYLAXIS
  10. CRESTOR [Concomitant]
     Indication: BLOOD CHOLESTEROL ABNORMAL

REACTIONS (6)
  - BLOOD GLUCOSE DECREASED [None]
  - INTERNATIONAL NORMALISED RATIO INCREASED [None]
  - DIARRHOEA [None]
  - FEELING HOT [None]
  - FLUSHING [None]
  - PRURITUS [None]
